FAERS Safety Report 25021385 (Version 2)
Quarter: 2025Q3

REPORT INFORMATION
  Report Type: Report from Study
  Country: CA (occurrence: CA)
  Receive Date: 20250228
  Receipt Date: 20250818
  Transmission Date: 20251020
  Serious: Yes (Other)
  Sender: ABBVIE
  Company Number: CA-JNJFOC-20250250025

PATIENT
  Age: 52 Year
  Sex: Female

DRUGS (1)
  1. IMBRUVICA [Suspect]
     Active Substance: IBRUTINIB
     Indication: Mantle cell lymphoma
     Dosage: FOR 19 DAYS
     Route: 048
     Dates: end: 202411

REACTIONS (1)
  - Stem cell transplant [Unknown]
